FAERS Safety Report 6236604-3 (Version None)
Quarter: 2009Q2

REPORT INFORMATION
  Report Type: 
  Country: None (occurrence: None)
  Receive Date: 20090619
  Receipt Date: 20090609
  Transmission Date: 20091009
  Serious: Yes (Hospitalization)
  Sender: FDA-Public Use
  Company Number: FR-PFIZER INC-2009224693

PATIENT
  Age: 76 Year

DRUGS (14)
  1. DEPO-MEDROL [Suspect]
     Dosage: 1 DF, SINGLE
     Route: 008
     Dates: start: 20090309, end: 20090309
  2. FORLAX [Concomitant]
  3. DAFALGAN [Concomitant]
  4. NEXIUM [Concomitant]
  5. TRIMETAZIDINE [Concomitant]
     Dosage: 20 UNK, UNK
  6. CHONDROSULF [Concomitant]
     Dosage: 400 UNK, UNK
  7. NISISCO [Concomitant]
     Dosage: 160/12.5
  8. PRAVASTATIN [Concomitant]
     Dosage: 20 UNK, UNK
  9. HYPERIUM [Concomitant]
  10. CLONAZEPAM [Concomitant]
  11. SKENAN [Concomitant]
     Dosage: 30 UNK, UNK
  12. ACTISKENAN [Concomitant]
     Dosage: 10 UNK, UNK
  13. LOVENOX [Concomitant]
     Dosage: 40 UNK, UNK
  14. MYOLASTAN [Concomitant]

REACTIONS (4)
  - HYPERCAPNIA [None]
  - HYPOXIA [None]
  - INCORRECT ROUTE OF DRUG ADMINISTRATION [None]
  - MALAISE [None]
